FAERS Safety Report 22148153 (Version 1)
Quarter: 2023Q1

REPORT INFORMATION
  Report Type: Report from Study
  Country: US (occurrence: US)
  Receive Date: 20230328
  Receipt Date: 20230328
  Transmission Date: 20230418
  Serious: Yes (Hospitalization, Other)
  Sender: FDA-Public Use
  Company Number: US-SHR-US-2007-006932

PATIENT
  Age: 75 Year
  Sex: Female
  Weight: 61.36 kg

DRUGS (7)
  1. BETASERON [Suspect]
     Active Substance: INTERFERON BETA-1B
     Indication: Relapsing-remitting multiple sclerosis
     Dosage: 8 MIU, QOD
     Route: 058
     Dates: start: 20000403
  2. BETASERON [Suspect]
     Active Substance: INTERFERON BETA-1B
     Dosage: UNK
     Route: 065
     Dates: start: 20090331, end: 20230314
  3. BETASERON [Suspect]
     Active Substance: INTERFERON BETA-1B
  4. CYCLOPHOSPHAMIDE [Suspect]
     Active Substance: CYCLOPHOSPHAMIDE
     Indication: Breast cancer
     Dosage: UNK
     Route: 065
     Dates: start: 20070409
  5. DOXORUBICIN [Suspect]
     Active Substance: DOXORUBICIN
     Indication: Breast cancer
     Dosage: UNK
     Route: 065
  6. ASPIRIN [Concomitant]
     Active Substance: ASPIRIN
     Indication: Product used for unknown indication
     Dosage: UNK
     Route: 065
  7. ISOFLAVONES SOY [Concomitant]
     Active Substance: ISOFLAVONES SOY
     Indication: Product used for unknown indication
     Dosage: UNK
     Route: 065

REACTIONS (11)
  - Invasive lobular breast carcinoma [Not Recovered/Not Resolved]
  - Cardiovascular disorder [Unknown]
  - Coronary artery disease [Not Recovered/Not Resolved]
  - Dysgraphia [Unknown]
  - Mobility decreased [Unknown]
  - Cognitive disorder [Unknown]
  - Hemiparesis [Unknown]
  - Fatigue [Unknown]
  - Nausea [Not Recovered/Not Resolved]
  - Multiple sclerosis [Not Recovered/Not Resolved]
  - Multiple sclerosis relapse [Not Recovered/Not Resolved]

NARRATIVE: CASE EVENT DATE: 20000101
